FAERS Safety Report 5584643-8 (Version None)
Quarter: 2008Q1

REPORT INFORMATION
  Report Type: 
  Country: None (occurrence: None)
  Receive Date: 20080108
  Receipt Date: 20071228
  Transmission Date: 20080703
  Serious: Yes (Other)
  Sender: FDA-Public Use
  Company Number: US-PFIZER INC-2008000519

PATIENT
  Sex: Female
  Weight: 78.181 kg

DRUGS (6)
  1. LIPITOR [Suspect]
     Indication: BLOOD CHOLESTEROL
     Route: 048
     Dates: start: 20070501, end: 20071227
  2. AVAPRO [Concomitant]
  3. MACROGOL [Concomitant]
  4. FLONASE [Concomitant]
  5. ROGAINE [Concomitant]
  6. LAXATIVES [Concomitant]

REACTIONS (3)
  - CIRCUMSTANCE OR INFORMATION CAPABLE OF LEADING TO MEDICATION ERROR [None]
  - EYE OEDEMA [None]
  - PRURITUS [None]
